FAERS Safety Report 19590678 (Version 1)
Quarter: 2021Q3

REPORT INFORMATION
  Report Type: Spontaneous
  Country: CN (occurrence: CN)
  Receive Date: 20210721
  Receipt Date: 20210721
  Transmission Date: 20211014
  Serious: Yes (Other)
  Sender: FDA-Public Use
  Company Number: CN-PFIZER INC-2021855838

PATIENT
  Age: 17 Year
  Sex: Male
  Weight: 64 kg

DRUGS (4)
  1. SODIUM CHLORIDE. [Concomitant]
     Active Substance: SODIUM CHLORIDE
     Indication: OSTEOSARCOMA
     Dosage: 1000 ML, 1X/DAY
     Route: 041
     Dates: start: 20210602, end: 20210604
  2. EPIRUBICIN HCL [Suspect]
     Active Substance: EPIRUBICIN HYDROCHLORIDE
     Indication: OSTEOSARCOMA
     Dosage: 60 MG, 1X/DAY
     Route: 041
     Dates: start: 20210602, end: 20210603
  3. SODIUM CHLORIDE. [Concomitant]
     Active Substance: SODIUM CHLORIDE
     Indication: OSTEOSARCOMA
     Dosage: 500 ML, 1X/DAY
     Route: 041
     Dates: start: 20210602, end: 20210603
  4. CISPLATIN. [Suspect]
     Active Substance: CISPLATIN
     Indication: OSTEOSARCOMA
     Dosage: 150 MG, 1X/DAY
     Route: 041
     Dates: start: 20210602, end: 20210604

REACTIONS (5)
  - Off label use [Unknown]
  - Nausea [Recovering/Resolving]
  - Vomiting [Recovering/Resolving]
  - Decreased appetite [Recovering/Resolving]
  - Abdominal discomfort [Recovering/Resolving]

NARRATIVE: CASE EVENT DATE: 20210602
